FAERS Safety Report 19488368 (Version 2)
Quarter: 2021Q3

REPORT INFORMATION
  Report Type: Spontaneous
  Country: LT (occurrence: LT)
  Receive Date: 20210702
  Receipt Date: 20210914
  Transmission Date: 20211014
  Serious: No
  Sender: FDA-Public Use
  Company Number: LT-BAUSCH-BL-2021-021743

PATIENT
  Age: 21 Year
  Sex: Male

DRUGS (13)
  1. DIAZEPAM. [Suspect]
     Active Substance: DIAZEPAM
     Indication: PSYCHOTIC SYMPTOM
     Route: 065
  2. TRIHEXYPHENIDYL [Suspect]
     Active Substance: TRIHEXYPHENIDYL
     Route: 065
  3. HALOPERIDOL. [Suspect]
     Active Substance: HALOPERIDOL
     Route: 065
  4. CARBAMAZEPINE. [Suspect]
     Active Substance: CARBAMAZEPINE
     Indication: PSYCHOTIC SYMPTOM
     Route: 065
  5. TRIHEXYPHENIDYL [Suspect]
     Active Substance: TRIHEXYPHENIDYL
     Indication: PSYCHOTIC SYMPTOM
     Route: 065
  6. OLANZAPINE. [Suspect]
     Active Substance: OLANZAPINE
     Route: 065
  7. CARBAMAZEPINE. [Suspect]
     Active Substance: CARBAMAZEPINE
     Route: 065
  8. OLANZAPINE. [Suspect]
     Active Substance: OLANZAPINE
     Route: 048
  9. CARBAMAZEPINE. [Suspect]
     Active Substance: CARBAMAZEPINE
     Route: 065
  10. TRIHEXYPHENIDYL [Suspect]
     Active Substance: TRIHEXYPHENIDYL
     Route: 065
  11. HALOPERIDOL. [Suspect]
     Active Substance: HALOPERIDOL
     Indication: PSYCHOTIC SYMPTOM
     Route: 065
  12. OLANZAPINE. [Suspect]
     Active Substance: OLANZAPINE
     Indication: PSYCHOTIC SYMPTOM
     Route: 065
  13. COAGULATION FACTOR VIII [Concomitant]
     Active Substance: ANTIHEMOPHILIC FACTOR HUMAN
     Indication: FACTOR VIII DEFICIENCY

REACTIONS (1)
  - Therapy non-responder [Unknown]
